FAERS Safety Report 6921527-4 (Version None)
Quarter: 2010Q3

REPORT INFORMATION
  Report Type: 
  Country: None (occurrence: None)
  Receive Date: 20100812
  Receipt Date: 20100802
  Transmission Date: 20110219
  Serious: Yes (Hospitalization)
  Sender: FDA-Public Use
  Company Number: PHHY2010AU50700

PATIENT
  Sex: Male
  Weight: 57 kg

DRUGS (1)
  1. EXJADE [Suspect]
     Indication: IRON OVERLOAD
     Dosage: UNK
     Dates: start: 20100501, end: 20100701

REACTIONS (4)
  - BLISTER [None]
  - MALAISE [None]
  - PAIN [None]
  - RENAL FAILURE [None]
